APPROVED DRUG PRODUCT: MIDODRINE HYDROCHLORIDE
Active Ingredient: MIDODRINE HYDROCHLORIDE
Strength: 10MG
Dosage Form/Route: TABLET;ORAL
Application: A211973 | Product #003 | TE Code: AB
Applicant: NOVUGEN PHARMA MALAYSIA SDN BHD
Approved: Oct 17, 2023 | RLD: No | RS: No | Type: RX